FAERS Safety Report 25725478 (Version 2)
Quarter: 2025Q3

REPORT INFORMATION
  Report Type: Spontaneous
  Country: US (occurrence: US)
  Receive Date: 20250826
  Receipt Date: 20250909
  Transmission Date: 20251020
  Serious: Yes (Hospitalization, Other)
  Sender: AUROBINDO
  Company Number: US-MLMSERVICE-20250806-PI604566-00255-2

PATIENT
  Age: 58 Year
  Sex: Female

DRUGS (7)
  1. CARBOPLATIN [Suspect]
     Active Substance: CARBOPLATIN
     Indication: Endometrial cancer stage III
     Route: 042
  2. CISPLATIN [Suspect]
     Active Substance: CISPLATIN
     Indication: Endometrial cancer stage III
     Route: 042
  3. PACLITAXEL [Suspect]
     Active Substance: PACLITAXEL
     Indication: Endometrial cancer stage III
     Route: 042
  4. PACLITAXEL [Suspect]
     Active Substance: PACLITAXEL
     Route: 042
  5. LEVOTHYROXINE [Concomitant]
     Active Substance: LEVOTHYROXINE
     Indication: Hypothyroidism
     Route: 065
  6. IBUPROFEN [Concomitant]
     Active Substance: IBUPROFEN
     Indication: Abdominal pain lower
     Route: 065
  7. PANTOPRAZOLE [Concomitant]
     Active Substance: PANTOPRAZOLE
     Indication: Product used for unknown indication
     Route: 065

REACTIONS (6)
  - Febrile neutropenia [Unknown]
  - Upper gastrointestinal haemorrhage [Recovered/Resolved]
  - Anaemia [Recovered/Resolved]
  - Reactive gastropathy [Recovered/Resolved]
  - Oesophagitis [Unknown]
  - Peptic ulcer [Unknown]
